FAERS Safety Report 10534268 (Version 1)
Quarter: 2014Q4

REPORT INFORMATION
  Report Type: Spontaneous
  Country: US (occurrence: US)
  Receive Date: 20141022
  Receipt Date: 20141022
  Transmission Date: 20150529
  Serious: No
  Sender: FDA-Public Use
  Company Number: US-BAUSCH-SYM-2014-14799

PATIENT
  Age: 59 Year
  Sex: Female

DRUGS (3)
  1. NICOTINE POLACRILEX STOP SMOKING AID [Suspect]
     Active Substance: NICOTINE
     Indication: SMOKING CESSATION THERAPY
     Route: 002
     Dates: start: 20131103, end: 20131117
  2. WELLBUTRIN XL [Suspect]
     Active Substance: BUPROPION HYDROCHLORIDE
     Indication: PRODUCT USED FOR UNKNOWN INDICATION
  3. NICOTINE TRANSDERMAL SYSTEM [Suspect]
     Active Substance: NICOTINE
     Indication: SMOKING CESSATION THERAPY
     Route: 062
     Dates: start: 20131103, end: 20131117

REACTIONS (4)
  - Nervousness [Recovered/Resolved]
  - Feeling jittery [Recovered/Resolved]
  - Overdose [Unknown]
  - Expired product administered [Unknown]
